FAERS Safety Report 7100076-7 (Version None)
Quarter: 2010Q4

REPORT INFORMATION
  Report Type: 
  Country: None (occurrence: None)
  Receive Date: 20101112
  Receipt Date: 20090924
  Transmission Date: 20110411
  Serious: Yes (Hospitalization)
  Sender: FDA-Public Use
  Company Number: A0808856A

PATIENT
  Age: 74 Year
  Sex: Male

DRUGS (20)
  1. COREG [Suspect]
     Dosage: 3.125MG TWICE PER DAY
     Route: 048
     Dates: start: 20060101, end: 20080101
  2. CELEXA [Concomitant]
  3. CLARITIN [Concomitant]
  4. COLCHICINE [Concomitant]
  5. CRESTOR [Concomitant]
  6. DIGOXIN [Concomitant]
  7. UNKNOWN [Concomitant]
  8. COLCHICINE [Concomitant]
  9. PECTORAL [Concomitant]
  10. PROCRIT [Concomitant]
  11. INSULIN [Concomitant]
  12. LOVAZA [Concomitant]
  13. MAGNESIUM OXIDE [Concomitant]
  14. NIASPAN [Concomitant]
  15. UNKNOWN [Concomitant]
  16. UNKNOWN [Concomitant]
  17. TRICOR [Concomitant]
  18. UNKNOWN [Concomitant]
  19. VITAMIN D [Concomitant]
  20. COREG CR [Concomitant]

REACTIONS (1)
  - BLOOD PRESSURE DECREASED [None]
